FAERS Safety Report 8474306-3 (Version None)
Quarter: 2012Q2

REPORT INFORMATION
  Report Type: 
  Country: None (occurrence: None)
  Receive Date: 20120628
  Receipt Date: 20120622
  Transmission Date: 20120825
  Serious: Yes (Hospitalization)
  Sender: FDA-Public Use
  Company Number: US-AMGEN-USASP2011049938

PATIENT
  Age: 68 Year
  Sex: Male
  Weight: 112 kg

DRUGS (2)
  1. ENBREL [Suspect]
     Indication: RHEUMATOID ARTHRITIS
     Dosage: UNK
     Dates: start: 20110222
  2. ENBREL [Suspect]
     Dosage: 50 MG, QWK
     Route: 058
     Dates: start: 20060101, end: 20100201

REACTIONS (3)
  - LUNG INFECTION PSEUDOMONAL [None]
  - RHEUMATOID ARTHRITIS [None]
  - DECREASED IMMUNE RESPONSIVENESS [None]
